FAERS Safety Report 6976633-5 (Version None)
Quarter: 2010Q3

REPORT INFORMATION
  Report Type: 
  Country: None (occurrence: None)
  Receive Date: 20100910
  Receipt Date: 20100721
  Transmission Date: 20110219
  Serious: Yes (Other)
  Sender: FDA-Public Use
  Company Number: DE-PFIZER INC-2010068444

PATIENT
  Sex: Male

DRUGS (1)
  1. CAVERJECT [Suspect]
     Dosage: UNK
     Route: 017

REACTIONS (2)
  - HYPERSENSITIVITY [None]
  - LIQUID PRODUCT PHYSICAL ISSUE [None]
